FAERS Safety Report 11906076 (Version 1)
Quarter: 2016Q1

REPORT INFORMATION
  Report Type: Spontaneous
  Country: US (occurrence: None)
  Receive Date: 20160108
  Receipt Date: 20160108
  Transmission Date: 20160526
  Serious: Yes (Other)
  Sender: FDA-Public Use
  Company Number: None

PATIENT
  Age: 48 Year
  Sex: Female

DRUGS (1)
  1. RASUVO [Suspect]
     Active Substance: METHOTREXATE SODIUM
     Indication: RHEUMATOID ARTHRITIS
     Dosage: 15MG   ONCE WEEKLY  SUBCUTANEOUS
     Route: 058
     Dates: start: 20151228

REACTIONS (1)
  - Headache [None]

NARRATIVE: CASE EVENT DATE: 20160107
